FAERS Safety Report 20320032 (Version 1)
Quarter: 2022Q1

REPORT INFORMATION
  Report Type: Spontaneous
  Country: US (occurrence: US)
  Receive Date: 20220111
  Receipt Date: 20220111
  Transmission Date: 20220423
  Serious: Yes (Hospitalization, Other)
  Sender: FDA-Public Use
  Company Number: US-AUROBINDO-AUR-APL-2022-000575

PATIENT
  Age: 54 Year
  Sex: Male

DRUGS (10)
  1. AMIODARONE HYDROCHLORIDE [Interacting]
     Active Substance: AMIODARONE HYDROCHLORIDE
     Indication: Cardiogenic shock
     Dosage: 150 MILLIGRAM
     Route: 040
  2. AMIODARONE HYDROCHLORIDE [Interacting]
     Active Substance: AMIODARONE HYDROCHLORIDE
     Dosage: 1 UNK (MG/MIN FOR 6 HOURS)
     Route: 041
  3. AMIODARONE HYDROCHLORIDE [Interacting]
     Active Substance: AMIODARONE HYDROCHLORIDE
     Dosage: 0.5 UNK (MG/MIN)
     Route: 065
  4. AMIODARONE HYDROCHLORIDE [Interacting]
     Active Substance: AMIODARONE HYDROCHLORIDE
     Dosage: UNK
     Route: 048
  5. CLOPIDOGREL [Interacting]
     Active Substance: CLOPIDOGREL BISULFATE
     Indication: Cardiogenic shock
     Dosage: 75 MILLIGRAM, DAILY
     Route: 065
  6. HEPARIN [Suspect]
     Active Substance: HEPARIN SODIUM
     Indication: Cardiogenic shock
     Dosage: UNK
     Route: 042
  7. APIXABAN [Interacting]
     Active Substance: APIXABAN
     Indication: Cardiogenic shock
     Dosage: 5 MILLIGRAM, TWO TIMES A DAY
     Route: 065
  8. ASPIRIN [Interacting]
     Active Substance: ASPIRIN
     Indication: Cardiogenic shock
     Dosage: 81 MILLIGRAM, DAILY
     Route: 065
  9. MILRINONE [Concomitant]
     Active Substance: MILRINONE
     Indication: Product used for unknown indication
     Dosage: UNK
     Route: 065
  10. NOREPINEPHRINE [Concomitant]
     Active Substance: NOREPINEPHRINE
     Indication: Product used for unknown indication
     Dosage: UNK
     Route: 065

REACTIONS (2)
  - Pericardial haemorrhage [Unknown]
  - Drug interaction [Unknown]
